FAERS Safety Report 4623123-0 (Version None)
Quarter: 2005Q1

REPORT INFORMATION
  Report Type: 
  Country: None (occurrence: None)
  Receive Date: 20050328
  Receipt Date: 20050328
  Transmission Date: 20050727
  Serious: No
  Sender: FDA-Public Use
  Company Number: None

PATIENT
  Sex: Female
  Weight: 53 kg

DRUGS (2)
  1. CYTARABINE [Suspect]
     Dosage: 100 MG/M2/DAY BY CIV IN DAYS 1-7
     Route: 042
  2. DAUNORUBICIN [Suspect]
     Dosage: 60 MG/M2/DAY BY IVP ON DAYS 1-3
     Route: 042

REACTIONS (4)
  - ATRIAL TACHYCARDIA [None]
  - BACTERAEMIA [None]
  - NEUTROPHIL COUNT DECREASED [None]
  - PYREXIA [None]
